FAERS Safety Report 6903236-0 (Version None)
Quarter: 2010Q3

REPORT INFORMATION
  Report Type: 
  Country: None (occurrence: None)
  Receive Date: 20100803
  Receipt Date: 20080626
  Transmission Date: 20110219
  Serious: No
  Sender: FDA-Public Use
  Company Number: US-PFIZER INC-2008052081

PATIENT
  Sex: Female
  Weight: 54.5 kg

DRUGS (6)
  1. LYRICA [Suspect]
     Indication: FIBROMYALGIA
     Dates: start: 20080605
  2. FENTANYL CITRATE [Concomitant]
  3. LEVOTHYROXINE [Concomitant]
  4. ZOLOFT [Concomitant]
  5. PROTONIX [Concomitant]
  6. QVAR 40 [Concomitant]

REACTIONS (2)
  - DRUG INEFFECTIVE [None]
  - PAIN IN EXTREMITY [None]
